FAERS Safety Report 7702778-8 (Version None)
Quarter: 2011Q3

REPORT INFORMATION
  Report Type: 
  Country: None (occurrence: None)
  Receive Date: 20110823
  Receipt Date: 20110812
  Transmission Date: 20111222
  Serious: Yes (Hospitalization, Other)
  Sender: FDA-Public Use
  Company Number: US-BAYER-2011-047287

PATIENT
  Age: 24 Year
  Sex: Female
  Weight: 58.05 kg

DRUGS (6)
  1. MOTRIN [Concomitant]
     Dosage: UNK UNK, PRN
  2. MULTI-VITAMIN [Concomitant]
  3. YAZ [Suspect]
     Indication: CONTRACEPTION
  4. YASMIN [Suspect]
     Indication: CONTRACEPTION
     Dosage: UNK
     Dates: start: 20020902, end: 20070401
  5. SEASONALE [Concomitant]
  6. DROSPIRENONE AND ETHINYL ESTRADIOL [Suspect]
     Indication: CONTRACEPTION
     Dosage: UNK
     Dates: start: 20080801, end: 20090901

REACTIONS (9)
  - GALLBLADDER INJURY [None]
  - ABDOMINAL PAIN [None]
  - NAUSEA [None]
  - INJURY [None]
  - VOMITING [None]
  - RETCHING [None]
  - ABDOMINAL DISTENSION [None]
  - CHOLECYSTITIS CHRONIC [None]
  - CHOLELITHIASIS [None]
